FAERS Safety Report 4855708-0 (Version None)
Quarter: 2005Q4

REPORT INFORMATION
  Report Type: 
  Country: None (occurrence: None)
  Receive Date: 20051216
  Receipt Date: 20051205
  Transmission Date: 20060501
  Serious: Yes (Other)
  Sender: FDA-Public Use
  Company Number: JP-ROCHE-427636

PATIENT
  Age: 36 Year
  Sex: Female

DRUGS (4)
  1. PEGASYS [Suspect]
     Route: 058
     Dates: start: 20050304, end: 20050408
  2. PEGASYS [Suspect]
     Route: 058
     Dates: start: 20050506, end: 20051007
  3. SOLANAX [Concomitant]
     Indication: INSOMNIA
     Route: 048
     Dates: start: 20050916
  4. DEPAS [Concomitant]
     Indication: INSOMNIA
     Route: 048
     Dates: start: 20050916

REACTIONS (3)
  - ABORTION SPONTANEOUS [None]
  - DRUG EXPOSURE DURING PREGNANCY [None]
  - PREGNANCY [None]
